FAERS Safety Report 23620165 (Version 1)
Quarter: 2024Q1

REPORT INFORMATION
  Report Type: Spontaneous
  Country: US (occurrence: US)
  Receive Date: 20240312
  Receipt Date: 20240312
  Transmission Date: 20240410
  Serious: Yes (Hospitalization, Other)
  Sender: FDA-Public Use
  Company Number: US-MLMSERVICE-20240222-4842514-1

PATIENT
  Age: 82 Year
  Sex: Female

DRUGS (3)
  1. FLECAINIDE [Suspect]
     Active Substance: FLECAINIDE
     Indication: Arrhythmia supraventricular
     Dosage: LOWEST DOSE
     Route: 065
  2. FLECAINIDE [Suspect]
     Active Substance: FLECAINIDE
     Dosage: 100 MILLIGRAM (LOWEST DOSE)
     Route: 065
  3. FLECAINIDE [Suspect]
     Active Substance: FLECAINIDE
     Dosage: 50 MILLIGRAM
     Route: 065

REACTIONS (4)
  - Electrocardiogram QRS complex prolonged [Recovered/Resolved]
  - Bundle branch block left [Unknown]
  - Left ventricular hypertrophy [Unknown]
  - Cardiac failure [Unknown]
